FAERS Safety Report 24422180 (Version 1)
Quarter: 2024Q4

REPORT INFORMATION
  Report Type: Spontaneous
  Country: JP (occurrence: JP)
  Receive Date: 20241010
  Receipt Date: 20241010
  Transmission Date: 20250114
  Serious: Yes (Other)
  Sender: MYLAN
  Company Number: JP-MYLANLABS-2024M1091845

PATIENT
  Age: 71 Year
  Sex: Female

DRUGS (3)
  1. MESALAMINE [Suspect]
     Active Substance: MESALAMINE
     Indication: Colitis ulcerative
     Dosage: RECEIVED FOR MORE THAN 11 YEARS
     Route: 065
  2. VEDOLIZUMAB [Concomitant]
     Active Substance: VEDOLIZUMAB
     Indication: Colitis ulcerative
     Route: 065
  3. FD+C RED NO. 3 [Concomitant]
     Active Substance: FD+C RED NO. 3
     Indication: Lung consolidation
     Route: 048

REACTIONS (1)
  - Drug ineffective [Unknown]
